FAERS Safety Report 8594047-1 (Version None)
Quarter: 2012Q3

REPORT INFORMATION
  Report Type: 
  Country: None (occurrence: None)
  Receive Date: 20120814
  Receipt Date: 20120809
  Transmission Date: 20120928
  Serious: Yes (Death, Congenital Anomaly, Other)
  Sender: FDA-Public Use
  Company Number: PHHY2012ZA069029

PATIENT

DRUGS (1)
  1. WARFARIN SODIUM [Suspect]
     Dosage: (MATERNAL DOSE: 7.5 MG)
     Route: 064

REACTIONS (5)
  - CHOANAL ATRESIA [None]
  - CONGENITAL NOSE MALFORMATION [None]
  - FOETAL EXPOSURE DURING PREGNANCY [None]
  - DEATH NEONATAL [None]
  - MICROCEPHALY [None]
